FAERS Safety Report 4562578-7 (Version None)
Quarter: 2005Q1

REPORT INFORMATION
  Report Type: 
  Country: None (occurrence: None)
  Receive Date: 20050127
  Receipt Date: 20011218
  Transmission Date: 20050727
  Serious: Yes (Death)
  Sender: FDA-Public Use
  Company Number: US-ROCHE-303947

PATIENT
  Age: 23 Year
  Sex: Male
  Weight: 90 kg

DRUGS (6)
  1. ACCUTANE [Suspect]
     Indication: ACNE
     Route: 048
     Dates: start: 19981124, end: 19990117
  2. ACCUTANE [Suspect]
     Route: 048
     Dates: start: 19990118, end: 19990218
  3. ACCUTANE [Suspect]
     Route: 048
     Dates: start: 19990219, end: 19990414
  4. ACCUTANE [Suspect]
     Route: 048
     Dates: start: 19990415, end: 19990513
  5. NORITATE [Concomitant]
     Indication: ACNE
     Dates: start: 19990219
  6. UNSPECIFIED DRUG [Concomitant]
     Indication: ACNE
     Dosage: DRUG NAME REPORTED AS NEOCL.
     Dates: start: 19990219

REACTIONS (10)
  - ACNE [None]
  - ANGER [None]
  - BLOOD CHOLESTEROL INCREASED [None]
  - COMPLETED SUICIDE [None]
  - DEPRESSION [None]
  - DRY SKIN [None]
  - EYE IRRITATION [None]
  - FLUSHING [None]
  - GUN SHOT WOUND [None]
  - LIP DRY [None]
